FAERS Safety Report 7957288-X (Version None)
Quarter: 2011Q4

REPORT INFORMATION
  Report Type: 
  Country: None (occurrence: None)
  Receive Date: 20111205
  Receipt Date: 20111123
  Transmission Date: 20120403
  Serious: Yes (Other)
  Sender: FDA-Public Use
  Company Number: US-ELI_LILLY_AND_COMPANY-US201102007269

PATIENT
  Sex: Female

DRUGS (1)
  1. FORTEO [Suspect]
     Indication: OSTEOPOROSIS
     Dosage: 20 UG, DAILY (1/D)
     Dates: start: 20110221

REACTIONS (10)
  - BLOOD PRESSURE INCREASED [None]
  - DIZZINESS [None]
  - ABDOMINAL PAIN UPPER [None]
  - CLOSTRIDIAL INFECTION [None]
  - INJECTION SITE PAIN [None]
  - INJECTION SITE NODULE [None]
  - GASTROINTESTINAL DISORDER [None]
  - DYSSTASIA [None]
  - ASTHENIA [None]
  - NAUSEA [None]
